FAERS Safety Report 8055154-5 (Version None)
Quarter: 2012Q1

REPORT INFORMATION
  Report Type: 
  Country: None (occurrence: None)
  Receive Date: 20120119
  Receipt Date: 20120111
  Transmission Date: 20120608
  Serious: Yes (Other)
  Sender: FDA-Public Use
  Company Number: US-PFIZER INC-US-WYE-H13423810

PATIENT
  Sex: Female

DRUGS (8)
  1. DESVENLAFAXINE SUCCINATE MONOHYDRATE [Suspect]
     Indication: MAJOR DEPRESSION
     Dosage: UNKNOWN
     Route: 065
     Dates: end: 20090101
  2. EFFEXOR [Suspect]
     Dosage: 200 MG, UNK
  3. KLONOPIN [Concomitant]
     Route: 065
  4. SEROQUEL [Concomitant]
     Route: 065
  5. EFFEXOR [Suspect]
     Indication: MAJOR DEPRESSION
     Dosage: 400 MG DAILY
     Route: 048
     Dates: start: 20030101
  6. VIVACTIL [Concomitant]
     Route: 065
  7. PLAQUENIL [Concomitant]
     Route: 065
  8. SYNTHROID [Concomitant]
     Route: 065

REACTIONS (8)
  - SUICIDE ATTEMPT [None]
  - SUICIDAL IDEATION [None]
  - DRUG WITHDRAWAL SYNDROME [None]
  - FEELING OF DESPAIR [None]
  - INTENTIONAL SELF-INJURY [None]
  - IMPULSIVE BEHAVIOUR [None]
  - UPPER LIMB FRACTURE [None]
  - NAUSEA [None]
